FAERS Safety Report 5264917-0 (Version None)
Quarter: 2007Q1

REPORT INFORMATION
  Report Type: 
  Country: None (occurrence: None)
  Receive Date: 20061117
  Receipt Date: 20051121
  Transmission Date: 20070707
  Serious: Yes (Life-Threatening, Hospitalization)
  Sender: FDA-Public Use
  Company Number: US-JNJFOC-20050907047

PATIENT
  Age: 53 Year
  Sex: Male

DRUGS (2)
  1. LEVAQUIN [Suspect]
     Indication: BRONCHITIS
     Dosage: 750 MG, 1 IN 1 DAY
     Dates: start: 20050901, end: 20050901
  2. TUSSIONEX SYRUP (HYDROCODONE POLISTIREX) [Concomitant]

REACTIONS (2)
  - HEART RATE INCREASED [None]
  - VENTRICULAR TACHYCARDIA [None]
